FAERS Safety Report 6369570-0 (Version None)
Quarter: 2009Q3

REPORT INFORMATION
  Report Type: 
  Country: None (occurrence: None)
  Receive Date: 20090923
  Receipt Date: 20090916
  Transmission Date: 20100115
  Serious: Yes (Other)
  Sender: FDA-Public Use
  Company Number: US-BAYER-200932799GPV

PATIENT
  Age: 41 Year
  Sex: Male

DRUGS (5)
  1. MOXIFLOXACIN HCL [Suspect]
     Indication: PNEUMONIA
  2. EFAVIRENZ [Concomitant]
     Indication: ACQUIRED IMMUNODEFICIENCY SYNDROME
  3. ABACAVIR [Concomitant]
     Indication: ACQUIRED IMMUNODEFICIENCY SYNDROME
  4. LAMIVUDINE [Concomitant]
     Indication: ACQUIRED IMMUNODEFICIENCY SYNDROME
  5. TRIMETHOPRIM-SULPHAMETHOXAZOLE [Concomitant]
     Indication: DRUG USE FOR UNKNOWN INDICATION

REACTIONS (3)
  - EMPYEMA [None]
  - ENTEROCOCCAL INFECTION [None]
  - LUNG ABSCESS [None]
